FAERS Safety Report 11905728 (Version 3)
Quarter: 2016Q1

REPORT INFORMATION
  Report Type: Report from Study
  Country: CA (occurrence: CA)
  Receive Date: 20160111
  Receipt Date: 20160314
  Transmission Date: 20160526
  Serious: Yes (Other)
  Sender: FDA-Public Use
  Company Number: CA-BEH-2016057701

PATIENT
  Age: 52 Year
  Sex: Male
  Weight: 79.5 kg

DRUGS (1)
  1. HIZENTRA [Suspect]
     Active Substance: HUMAN IMMUNOGLOBULIN G
     Indication: PRIMARY IMMUNODEFICIENCY SYNDROME
     Dosage: PUMP METHOD, 50 ML PER WEEK FOR 3 WEEKS OUT OF 4
     Route: 058
     Dates: start: 20151230

REACTIONS (9)
  - Subcutaneous emphysema [Recovered/Resolved]
  - Sinus congestion [Recovering/Resolving]
  - Ill-defined disorder [Recovered/Resolved]
  - Rash generalised [Recovered/Resolved]
  - Sinusitis [Recovered/Resolved]
  - Facial pain [Recovering/Resolving]
  - Nasal discharge discolouration [Recovering/Resolving]
  - Discomfort [Recovering/Resolving]
  - Wrong technique in product usage process [Recovered/Resolved]

NARRATIVE: CASE EVENT DATE: 201601
